FAERS Safety Report 10664537 (Version 3)
Quarter: 2015Q1

REPORT INFORMATION
  Report Type: Spontaneous
  Country: US (occurrence: US)
  Receive Date: 20141219
  Receipt Date: 20150122
  Transmission Date: 20150720
  Serious: Yes (Other)
  Sender: FDA-Public Use
  Company Number: US-ASTRAZENECA-2004UW15276

PATIENT
  Age: 67 Year
  Sex: Female
  Weight: 90.7 kg

DRUGS (19)
  1. NEXIUM [Suspect]
     Active Substance: ESOMEPRAZOLE MAGNESIUM
     Indication: REFLUX GASTRITIS
     Route: 048
  2. PRILOSEC [Suspect]
     Active Substance: OMEPRAZOLE MAGNESIUM
     Indication: REFLUX GASTRITIS
     Route: 048
  3. POTASSIUM [Concomitant]
     Active Substance: POTASSIUM
  4. NEXIUM [Suspect]
     Active Substance: ESOMEPRAZOLE MAGNESIUM
     Indication: BARRETT^S OESOPHAGUS
     Route: 048
  5. VITAMIN B12 [Concomitant]
     Active Substance: CYANOCOBALAMIN
     Dosage: MONTHLY
  6. ASPIRIN. [Concomitant]
     Active Substance: ASPIRIN
     Route: 048
  7. CRESTOR [Suspect]
     Active Substance: ROSUVASTATIN CALCIUM
     Indication: BLOOD CHOLESTEROL INCREASED
     Dosage: ON TUESDAYS, THURSDAYS, SATURDAYS AND SUNDAYS
     Route: 048
     Dates: end: 20040610
  8. MAGNESIUM [Concomitant]
     Active Substance: MAGNESIUM
     Route: 048
  9. PROLIA [Concomitant]
     Active Substance: DENOSUMAB
     Indication: REFLUX GASTRITIS
     Dosage: BID
     Route: 048
  10. ZETIA [Concomitant]
     Active Substance: EZETIMIBE
  11. CALCIUM WITH VITAMIN D [Concomitant]
     Active Substance: CALCIUM\VITAMIN D
     Route: 048
  12. EYE CAPS WITH VITAMINS [Concomitant]
     Dosage: BID
  13. POCOQ 10 [Concomitant]
     Route: 048
  14. METOPROLOL [Suspect]
     Active Substance: METOPROLOL
     Indication: HYPERTENSION
     Route: 048
  15. PRILOSEC [Suspect]
     Active Substance: OMEPRAZOLE MAGNESIUM
     Indication: BARRETT^S OESOPHAGUS
     Route: 048
  16. SPIRONOLACTONE/TRIAMETERNE [Concomitant]
  17. FISH OIL [Concomitant]
     Active Substance: FISH OIL
     Route: 048
  18. SELENIUM [Concomitant]
     Active Substance: SELENIUM
     Route: 048
  19. VITAMIN C [Concomitant]
     Active Substance: ASCORBIC ACID

REACTIONS (4)
  - Myalgia [Recovering/Resolving]
  - Renal cancer [Unknown]
  - Muscular weakness [Unknown]
  - Intentional product misuse [Unknown]

NARRATIVE: CASE EVENT DATE: 2008
